FAERS Safety Report 4966461-4 (Version None)
Quarter: 2006Q2

REPORT INFORMATION
  Report Type: 
  Country: None (occurrence: None)
  Receive Date: 20060407
  Receipt Date: 20060330
  Transmission Date: 20061013
  Serious: Yes (Hospitalization)
  Sender: FDA-Public Use
  Company Number: 2006CG00612

PATIENT
  Age: 53 Year
  Sex: Female
  Weight: 60 kg

DRUGS (8)
  1. CRESTOR [Suspect]
     Indication: DYSLIPIDAEMIA
     Route: 048
     Dates: start: 20050901, end: 20060109
  2. CRESTOR [Interacting]
     Route: 048
     Dates: start: 20060201
  3. PREVISCAN [Interacting]
     Indication: CEREBRAL ARTERY OCCLUSION
     Route: 048
     Dates: start: 20050701, end: 20060109
  4. PREVISCAN [Interacting]
     Route: 048
     Dates: start: 20060217
  5. PROZAC [Interacting]
     Route: 048
     Dates: start: 20050701
  6. ZOCOR [Interacting]
     Indication: DYSLIPIDAEMIA
     Route: 048
     Dates: start: 20050701, end: 20050901
  7. ZOCOR [Interacting]
     Route: 048
     Dates: start: 20060101, end: 20060201
  8. SOTALOL HCL [Interacting]
     Route: 048
     Dates: start: 20050701

REACTIONS (2)
  - DRUG INTERACTION [None]
  - HAEMATOMA [None]
